FAERS Safety Report 10242015 (Version 1)
Quarter: 2014Q2

REPORT INFORMATION
  Report Type: Spontaneous
  Country: US (occurrence: US)
  Receive Date: 20140617
  Receipt Date: 20140617
  Transmission Date: 20141212
  Serious: No
  Sender: FDA-Public Use
  Company Number: US-PFIZER INC-2014162595

PATIENT
  Age: 21 Year
  Sex: Female
  Weight: 58.96 kg

DRUGS (2)
  1. ADVIL [Suspect]
     Indication: HEADACHE
     Dosage: 400 MG (BY TAKING 2 TABLETS OF 200MG), AS NEEDED
     Route: 048
     Dates: end: 20140603
  2. ADVIL [Suspect]
     Indication: PAIN

REACTIONS (4)
  - Tongue pruritus [Recovered/Resolved]
  - Swollen tongue [Recovered/Resolved]
  - Throat tightness [Recovered/Resolved]
  - Hypersensitivity [Recovered/Resolved]
